FAERS Safety Report 4577409-9 (Version None)
Quarter: 2005Q1

REPORT INFORMATION
  Report Type: 
  Country: None (occurrence: None)
  Receive Date: 20050208
  Receipt Date: 20050125
  Transmission Date: 20050727
  Serious: Yes (Other)
  Sender: FDA-Public Use
  Company Number: GBWYE370525JAN05

PATIENT
  Age: 77 Year
  Sex: Male

DRUGS (2)
  1. TAZOCIN [Suspect]
     Dosage: DOSE ADJUSTED TO ACCOUNT FOR SEVERE RENAL IMPAIRMENT
     Dates: start: 20050107, end: 20050117
  2. ZYVOX [Suspect]
     Dates: start: 20050104, end: 20050120

REACTIONS (3)
  - CONDITION AGGRAVATED [None]
  - HEPATIC FUNCTION ABNORMAL [None]
  - JAUNDICE CHOLESTATIC [None]
